FAERS Safety Report 5045719-7 (Version None)
Quarter: 2006Q3

REPORT INFORMATION
  Report Type: 
  Country: None (occurrence: None)
  Receive Date: 20060710
  Receipt Date: 20060503
  Transmission Date: 20061208
  Serious: Yes (Hospitalization)
  Sender: FDA-Public Use
  Company Number: PHNU2006DE01851

PATIENT
  Age: 38 Year
  Sex: Male
  Weight: 80 kg

DRUGS (4)
  1. TRILEPTAL [Suspect]
     Indication: EPILEPSY
     Dosage: 600 MG, BID
     Route: 048
  2. TRILEPTAL [Suspect]
     Dosage: 600 MG, BID
     Route: 048
     Dates: start: 20060301, end: 20060401
  3. TRILEPTAL [Suspect]
     Dosage: 600 MG, BID
     Route: 048
     Dates: start: 20060401
  4. TRILEPTAL [Suspect]
     Route: 048

REACTIONS (5)
  - ELECTROLYTE IMBALANCE [None]
  - HYPONATRAEMIA [None]
  - LIP DRY [None]
  - LOSS OF CONSCIOUSNESS [None]
  - SWELLING FACE [None]
